FAERS Safety Report 13363117 (Version 3)
Quarter: 2017Q2

REPORT INFORMATION
  Report Type: Spontaneous
  Country: RU (occurrence: RU)
  Receive Date: 20170323
  Receipt Date: 20170424
  Transmission Date: 20170830
  Serious: Yes (Death)
  Sender: FDA-Public Use
  Company Number: RU-ROCHE-1909117

PATIENT
  Age: 62 Year
  Sex: Female

DRUGS (1)
  1. AVASTIN [Suspect]
     Active Substance: BEVACIZUMAB
     Indication: GASTROINTESTINAL CARCINOMA
     Dosage: 7.5 MG/KG ONE INFUSION
     Route: 042
     Dates: start: 20170309, end: 20170309

REACTIONS (2)
  - Suspected counterfeit product [Unknown]
  - Coma [Fatal]

NARRATIVE: CASE EVENT DATE: 20170309
